FAERS Safety Report 6812343-2 (Version None)
Quarter: 2010Q3

REPORT INFORMATION
  Report Type: 
  Country: None (occurrence: None)
  Receive Date: 20100701
  Receipt Date: 20100618
  Transmission Date: 20110219
  Serious: Yes (Hospitalization)
  Sender: FDA-Public Use
  Company Number: PHHY2009JP40604

PATIENT
  Age: 55 Year
  Sex: Female

DRUGS (2)
  1. DICLOFENAC SODIUM [Suspect]
     Indication: ABDOMINAL PAIN LOWER
     Dosage: 50 MG, UNK
     Route: 054
  2. DICLOFENAC SODIUM [Suspect]
     Indication: PAIN

REACTIONS (24)
  - ABDOMINAL PAIN LOWER [None]
  - ADHESION [None]
  - APHAGIA [None]
  - ASCITES [None]
  - BLOOD SODIUM INCREASED [None]
  - BLOOD UREA INCREASED [None]
  - C-REACTIVE PROTEIN INCREASED [None]
  - DECREASED APPETITE [None]
  - GAIT DISTURBANCE [None]
  - HAEMODIALYSIS [None]
  - HYSTERECTOMY [None]
  - LYMPHADENECTOMY [None]
  - MALAISE [None]
  - MASS [None]
  - OLIGURIA [None]
  - OMENTECTOMY [None]
  - OVARIAN EPITHELIAL CANCER [None]
  - PERITONITIS [None]
  - PLEURAL EFFUSION [None]
  - RENAL FAILURE ACUTE [None]
  - SALPINGO-OOPHORECTOMY [None]
  - SURGERY [None]
  - VOMITING [None]
  - WHITE BLOOD CELL COUNT INCREASED [None]
